FAERS Safety Report 11748391 (Version 2)
Quarter: 2016Q2

REPORT INFORMATION
  Report Type: Spontaneous
  Country: US (occurrence: US)
  Receive Date: 20151117
  Receipt Date: 20160415
  Transmission Date: 20160815
  Serious: No
  Sender: FDA-Public Use
  Company Number: US-CELGENEUS-USA-2015100867

PATIENT
  Age: 71 Year
  Sex: Female

DRUGS (2)
  1. OTEZLA [Suspect]
     Active Substance: APREMILAST
     Indication: PSORIATIC ARTHROPATHY
     Route: 048
     Dates: start: 20141103
  2. OTEZLA [Suspect]
     Active Substance: APREMILAST
     Indication: PSORIASIS
     Route: 048
     Dates: start: 20141020

REACTIONS (3)
  - Bruxism [Recovered/Resolved]
  - Headache [Recovered/Resolved]
  - Drug ineffective [Recovered/Resolved]

NARRATIVE: CASE EVENT DATE: 201601
